FAERS Safety Report 21437721 (Version 1)
Quarter: 2022Q4

REPORT INFORMATION
  Report Type: Spontaneous
  Country: AR (occurrence: AR)
  Receive Date: 20221011
  Receipt Date: 20221011
  Transmission Date: 20230113
  Serious: Yes (Hospitalization, Other)
  Sender: FDA-Public Use
  Company Number: AR-AMGEN-ARGSP2022171503

PATIENT
  Age: 52 Year
  Sex: Female

DRUGS (8)
  1. CARFILZOMIB [Suspect]
     Active Substance: CARFILZOMIB
     Indication: Plasma cell myeloma
     Dosage: UNK
     Route: 065
     Dates: start: 2018
  2. BORTEZOMIB [Suspect]
     Active Substance: BORTEZOMIB
     Indication: Plasma cell myeloma
     Dosage: UNK
     Route: 065
     Dates: start: 2019
  3. CISPLATIN [Suspect]
     Active Substance: CISPLATIN
     Indication: Plasma cell myeloma
     Dosage: UNK
     Route: 065
     Dates: start: 2019
  4. CYCLOPHOSPHAMIDE [Suspect]
     Active Substance: CYCLOPHOSPHAMIDE
  5. DOXORUBICIN [Suspect]
     Active Substance: DOXORUBICIN
  6. ETOPOSIDE [Suspect]
     Active Substance: ETOPOSIDE
  7. THALIDOMIDE [Suspect]
     Active Substance: THALIDOMIDE
  8. DEXAMETHASONE [Suspect]
     Active Substance: DEXAMETHASONE

REACTIONS (4)
  - Device breakage [Unknown]
  - Plasma cell myeloma refractory [Unknown]
  - Tumour ulceration [Unknown]
  - Complication associated with device [Unknown]

NARRATIVE: CASE EVENT DATE: 20200101
